FAERS Safety Report 9632836 (Version 4)
Quarter: 2014Q3

REPORT INFORMATION
  Report Type: Report from Study
  Country: FR (occurrence: FR)
  Receive Date: 20131018
  Receipt Date: 20140807
  Transmission Date: 20150326
  Serious: Yes (Death, Hospitalization, Other)
  Sender: FDA-Public Use
  Company Number: FR-TEVA-431930ISR

PATIENT
  Age: 62 Year
  Sex: Female
  Weight: 75 kg

DRUGS (2)
  1. EFFENTORA [Suspect]
     Active Substance: FENTANYL CITRATE
     Indication: PAIN
     Dosage: 6400 MICROGRAM DAILY;
     Route: 002
     Dates: start: 20130719, end: 20130822
  2. MORPHINE [Concomitant]
     Active Substance: MORPHINE
     Indication: PAIN
     Dosage: 240 MILLIGRAM DAILY;
     Route: 042
     Dates: start: 20130822, end: 20130909

REACTIONS (5)
  - Death [Fatal]
  - Malignant neoplasm progression [Unknown]
  - Pain [Unknown]
  - Drug prescribing error [Unknown]
  - Pain [Unknown]

NARRATIVE: CASE EVENT DATE: 20130822
